FAERS Safety Report 18404715 (Version 5)
Quarter: 2023Q1

REPORT INFORMATION
  Report Type: Spontaneous
  Country: US (occurrence: US)
  Receive Date: 20201020
  Receipt Date: 20230102
  Transmission Date: 20230418
  Serious: No
  Sender: FDA-Public Use
  Company Number: US-BRISTOL-MYERS SQUIBB COMPANY-BMS-2020-086713

PATIENT
  Age: 36 Year
  Sex: Female

DRUGS (1)
  1. ABATACEPT [Suspect]
     Active Substance: ABATACEPT
     Indication: Rheumatoid arthritis
     Dosage: 125 MILLIGRAM, QWK
     Route: 058
     Dates: start: 20190522

REACTIONS (5)
  - Eye pruritus [Unknown]
  - Nasal congestion [Unknown]
  - Nasal dryness [Unknown]
  - Arthralgia [Unknown]
  - Joint swelling [Unknown]
